FAERS Safety Report 24550553 (Version 1)
Quarter: 2024Q4

REPORT INFORMATION
  Report Type: Spontaneous
  Country: CA (occurrence: CA)
  Receive Date: 20241025
  Receipt Date: 20241025
  Transmission Date: 20250114
  Serious: Yes (Other)
  Sender: PFIZER
  Company Number: CA-PFIZER INC-202400286518

PATIENT
  Age: 81 Year
  Sex: Female

DRUGS (1)
  1. SULFASALAZINE [Suspect]
     Active Substance: SULFASALAZINE
     Indication: Rheumatoid arthritis
     Dosage: 1500 MG, 2X/DAY
     Dates: start: 202001

REACTIONS (4)
  - Interstitial lung disease [Unknown]
  - Disease progression [Unknown]
  - Polyarthritis [Unknown]
  - Osteoarthritis [Unknown]
